FAERS Safety Report 17198007 (Version 1)
Quarter: 2019Q4

REPORT INFORMATION
  Report Type: Report from Study
  Country: DE (occurrence: DE)
  Receive Date: 20191225
  Receipt Date: 20191225
  Transmission Date: 20200122
  Serious: Yes (Hospitalization)
  Sender: FDA-Public Use
  Company Number: DE-ROCHE-2498615

PATIENT
  Age: 40 Year
  Sex: Male
  Weight: 70 kg

DRUGS (20)
  1. OCRELIZUMAB. [Suspect]
     Active Substance: OCRELIZUMAB
     Indication: MULTIPLE SCLEROSIS
     Route: 042
     Dates: start: 20180416, end: 20180430
  2. RANITIDIN [Concomitant]
     Active Substance: RANITIDINE HYDROCHLORIDE
     Indication: PROPHYLAXIS
     Route: 048
     Dates: start: 20181004, end: 20181006
  3. PREDNISOLON [PREDNISOLONE] [Concomitant]
     Active Substance: PREDNISOLONE
     Indication: PROPHYLAXIS
     Route: 042
     Dates: start: 20190412, end: 20190412
  4. OCRELIZUMAB. [Suspect]
     Active Substance: OCRELIZUMAB
     Indication: MULTIPLE SCLEROSIS
     Route: 042
     Dates: start: 20181005
  5. FAMPYRA [Concomitant]
     Active Substance: DALFAMPRIDINE
     Route: 048
     Dates: start: 20170508
  6. PREDNISOLON [PREDNISOLONE] [Concomitant]
     Active Substance: PREDNISOLONE
     Indication: PROPHYLAXIS
     Route: 042
     Dates: start: 20180430, end: 20180430
  7. AERIUS (DESLORATADINE) [Concomitant]
     Active Substance: DESLORATADINE
     Indication: PROPHYLAXIS
     Route: 048
     Dates: start: 20181004, end: 20181006
  8. PREDNISOLUT [PREDNISOLONE HEMISUCCINATE] [Concomitant]
     Indication: PROPHYLAXIS
     Route: 042
     Dates: start: 20180416, end: 20180416
  9. NATALIZUMAB [Concomitant]
     Active Substance: NATALIZUMAB
     Route: 065
     Dates: start: 201505, end: 201711
  10. GLATIRAMER ACETATE. [Concomitant]
     Active Substance: GLATIRAMER ACETATE
     Route: 065
     Dates: start: 201401, end: 201406
  11. RANITIDIN [Concomitant]
     Active Substance: RANITIDINE HYDROCHLORIDE
     Indication: PROPHYLAXIS
     Route: 048
     Dates: start: 20180429, end: 20180501
  12. AERIUS (DESLORATADINE) [Concomitant]
     Active Substance: DESLORATADINE
     Indication: PROPHYLAXIS
     Route: 048
     Dates: start: 20180429, end: 20180501
  13. AERIUS (DESLORATADINE) [Concomitant]
     Active Substance: DESLORATADINE
     Indication: PROPHYLAXIS
     Route: 048
     Dates: start: 20180415, end: 20180417
  14. RANITIDIN [Concomitant]
     Active Substance: RANITIDINE HYDROCHLORIDE
     Indication: PROPHYLAXIS
     Route: 048
     Dates: start: 20180415, end: 20180417
  15. DIMETHYL FUMARATE [Concomitant]
     Active Substance: DIMETHYL FUMARATE
     Route: 065
     Dates: start: 201407, end: 201504
  16. RANITIDIN [Concomitant]
     Active Substance: RANITIDINE HYDROCHLORIDE
     Indication: PROPHYLAXIS
     Route: 048
     Dates: start: 20190411, end: 20190413
  17. AERIUS (DESLORATADINE) [Concomitant]
     Active Substance: DESLORATADINE
     Indication: PROPHYLAXIS
     Route: 048
     Dates: start: 20190411, end: 20190413
  18. DEKRISTOL [Concomitant]
     Active Substance: CHOLECALCIFEROL
     Indication: PROPHYLAXIS
     Route: 048
     Dates: start: 20170131
  19. PREDNISOLON [PREDNISOLONE] [Concomitant]
     Active Substance: PREDNISOLONE
     Indication: PROPHYLAXIS
     Route: 042
     Dates: start: 20181005, end: 20181005
  20. ELONTRIL [Concomitant]
     Active Substance: BUPROPION HYDROCHLORIDE
     Indication: DEPRESSION
     Route: 048
     Dates: start: 20180701

REACTIONS (1)
  - Seizure [Unknown]

NARRATIVE: CASE EVENT DATE: 20190622
